FAERS Safety Report 16366237 (Version 1)
Quarter: 2019Q2

REPORT INFORMATION
  Report Type: Spontaneous
  Country: US (occurrence: US)
  Receive Date: 20190422
  Receipt Date: 20190422
  Transmission Date: 20190711
  Serious: Yes (Hospitalization)
  Sender: FDA-Public Use
  Company Number: None

PATIENT
  Age: 59 Year
  Sex: Male

DRUGS (1)
  1. ALLOPURINOL. [Suspect]
     Active Substance: ALLOPURINOL
     Indication: GOUT
     Route: 048
     Dates: start: 20181010, end: 20190115

REACTIONS (5)
  - Acute kidney injury [None]
  - Hepatic enzyme abnormal [None]
  - Pyrexia [None]
  - Rash [None]
  - Diarrhoea [None]

NARRATIVE: CASE EVENT DATE: 20190114
